FAERS Safety Report 24294989 (Version 2)
Quarter: 2024Q4

REPORT INFORMATION
  Report Type: Report from Study
  Country: IL (occurrence: IL)
  Receive Date: 20240907
  Receipt Date: 20241015
  Transmission Date: 20250114
  Serious: Yes (Hospitalization, Other)
  Sender: TEVA
  Company Number: IL-TEVA-VS-3239424

PATIENT
  Age: 64 Year
  Sex: Female

DRUGS (1)
  1. TERIPARATIDE [Suspect]
     Active Substance: TERIPARATIDE
     Indication: Osteoporosis
     Dosage: DOSE: 250
     Route: 065
     Dates: start: 20240115

REACTIONS (6)
  - Shoulder fracture [Unknown]
  - Product knowledge deficit [Unknown]
  - Wrong technique in product usage process [Unknown]
  - Haemoglobin decreased [Unknown]
  - Upper limb fracture [Unknown]
  - Fall [Unknown]

NARRATIVE: CASE EVENT DATE: 20240101
